FAERS Safety Report 4289186-X (Version None)
Quarter: 2004Q1

REPORT INFORMATION
  Report Type: 
  Country: None (occurrence: None)
  Receive Date: 20040209
  Receipt Date: 20040209
  Transmission Date: 20041129
  Serious: Yes (Other)
  Sender: FDA-Public Use
  Company Number: None

PATIENT
  Sex: Male

DRUGS (1)
  1. THALIDOMIDE 100 MG [Suspect]
     Indication: MULTIPLE MYELOMA
     Dosage: 100 MG DAILY ORAL
     Route: 048
     Dates: start: 20031203, end: 20041204

REACTIONS (1)
  - COUGH [None]
